FAERS Safety Report 11212149 (Version 1)
Quarter: 2015Q2

REPORT INFORMATION
  Report Type: Spontaneous
  Country: US (occurrence: None)
  Receive Date: 20150622
  Receipt Date: 20150622
  Transmission Date: 20150821
  Serious: Yes (Other)
  Sender: FDA-Public Use
  Company Number: None

PATIENT
  Age: 72 Year
  Sex: Female

DRUGS (2)
  1. EMLA [Suspect]
     Active Substance: LIDOCAINE\PRILOCAINE
     Indication: INFLAMMATION
     Route: 061
     Dates: start: 20141204, end: 20150618
  2. EMLA [Suspect]
     Active Substance: LIDOCAINE\PRILOCAINE
     Indication: PAIN
     Route: 061
     Dates: start: 20141204, end: 20150618

REACTIONS (2)
  - Application site vesicles [None]
  - Application site erythema [None]

NARRATIVE: CASE EVENT DATE: 20150618
